FAERS Safety Report 7714662-4 (Version None)
Quarter: 2011Q3

REPORT INFORMATION
  Report Type: 
  Country: None (occurrence: None)
  Receive Date: 20110822
  Receipt Date: 20110805
  Transmission Date: 20111222
  Serious: Yes (Death, Other)
  Sender: FDA-Public Use
  Company Number: 2011MA011507

PATIENT
  Age: 39 Year
  Sex: Male

DRUGS (7)
  1. METHADONE HCL [Suspect]
  2. 3, 4-METHYLENEDIOXYMETHAMPHETAMINE (NO PREF. NAME) [Suspect]
  3. METHAMPHETAMINE HYDROCHLORIDE [Suspect]
  4. P-METHOXYAMPHETAMINE (NO PREF. NAME) [Suspect]
  5. FEVERALL [Suspect]
  6. ETHANOL (ETHANOL) [Suspect]
  7. AMPHETAMINES [Suspect]

REACTIONS (4)
  - TOXICITY TO VARIOUS AGENTS [None]
  - HEPATITIS C [None]
  - FALL [None]
  - MULTIPLE INJURIES [None]
